FAERS Safety Report 6604083-X (Version None)
Quarter: 2010Q1

REPORT INFORMATION
  Report Type: 
  Country: None (occurrence: None)
  Receive Date: 20100226
  Receipt Date: 20090512
  Transmission Date: 20100710
  Serious: No
  Sender: FDA-Public Use
  Company Number: A0783764A

PATIENT
  Age: 27 Year
  Sex: Female

DRUGS (2)
  1. LAMOTRIGINE [Suspect]
     Dosage: 200MG TWICE PER DAY
     Route: 048
     Dates: start: 20090301
  2. TRILEPTAL [Concomitant]

REACTIONS (2)
  - ASTHENIA [None]
  - DYSKINESIA [None]
